FAERS Safety Report 10730396 (Version 3)
Quarter: 2015Q1

REPORT INFORMATION
  Report Type: Report from Study
  Country: DE (occurrence: DE)
  Receive Date: 20150122
  Receipt Date: 20150310
  Transmission Date: 20150721
  Serious: Yes (Death, Other)
  Sender: FDA-Public Use
  Company Number: DE-ABBVIE-15P-062-1335601-00

PATIENT
  Age: 68 Year
  Sex: Male

DRUGS (1)
  1. LUPRON DEPOT [Suspect]
     Active Substance: LEUPROLIDE ACETATE
     Indication: PROSTATE CANCER
     Route: 058
     Dates: start: 20121011, end: 20140729

REACTIONS (4)
  - Asthenia [Unknown]
  - Alcohol abuse [Unknown]
  - Circulatory collapse [Fatal]
  - Alcohol induced persisting dementia [Unknown]
